FAERS Safety Report 11362357 (Version 1)
Quarter: 2015Q3

REPORT INFORMATION
  Report Type: Spontaneous
  Country: US (occurrence: US)
  Receive Date: 20150810
  Receipt Date: 20150810
  Transmission Date: 20151125
  Serious: Yes (Other)
  Sender: FDA-Public Use
  Company Number: US-VIVUS-2015V1000369

PATIENT
  Age: 52 Year
  Sex: Male
  Weight: 136.2 kg

DRUGS (9)
  1. HYDROMORPHONE [Concomitant]
     Active Substance: HYDROMORPHONE
  2. PROBENECID. [Concomitant]
     Active Substance: PROBENECID
  3. COLCRYS [Concomitant]
     Active Substance: COLCHICINE
  4. QSYMIA [Suspect]
     Active Substance: PHENTERMINE HYDROCHLORIDE\TOPIRAMATE
     Indication: WEIGHT DECREASED
     Route: 048
     Dates: start: 201504
  5. VITAMIN D [Concomitant]
     Active Substance: CHOLECALCIFEROL
  6. LOSARTAN. [Concomitant]
     Active Substance: LOSARTAN
  7. CALCIUM [Concomitant]
     Active Substance: CALCIUM
  8. VITAMIN B12 [Concomitant]
     Active Substance: CYANOCOBALAMIN
  9. GLUCOSAMINE [Concomitant]
     Active Substance: GLUCOSAMINE

REACTIONS (2)
  - Platelet count decreased [Not Recovered/Not Resolved]
  - Hepatic cirrhosis [Not Recovered/Not Resolved]

NARRATIVE: CASE EVENT DATE: 201507
